FAERS Safety Report 20758690 (Version 1)
Quarter: 2022Q2

REPORT INFORMATION
  Report Type: Spontaneous
  Country: US (occurrence: US)
  Receive Date: 20220427
  Receipt Date: 20220427
  Transmission Date: 20220721
  Serious: No
  Sender: FDA-Public Use
  Company Number: US-PFIZER INC-202200461886

PATIENT
  Age: 49 Year
  Sex: Female

DRUGS (1)
  1. IBRANCE [Suspect]
     Active Substance: PALBOCICLIB
     Dosage: 125 MG, CYCLIC (TAKE 1 CAPSULE ONCE PER DAY FOR 21 DAYS THEN 7 DAYS OFF)
     Dates: start: 20220311

REACTIONS (1)
  - Gastrooesophageal reflux disease [Not Recovered/Not Resolved]
